FAERS Safety Report 8179702-X (Version None)
Quarter: 2012Q1

REPORT INFORMATION
  Report Type: 
  Country: None (occurrence: None)
  Receive Date: 20120302
  Receipt Date: 20120221
  Transmission Date: 20120608
  Serious: Yes (Hospitalization, Other)
  Sender: FDA-Public Use
  Company Number: US-ELI_LILLY_AND_COMPANY-US201008003854

PATIENT
  Sex: Female

DRUGS (15)
  1. LASIX [Concomitant]
     Dosage: 40 MG, DAILY (1/D)
  2. FORTEO [Suspect]
     Dosage: 20 UG, QD
     Dates: start: 20120219
  3. DILAUDID [Concomitant]
     Dosage: 2 MG, AS NEEDED
  4. ZANTAC [Concomitant]
     Dosage: 300 MG, UNK
  5. CYCLOBENZAPRINE [Concomitant]
     Dosage: 10 MG, UNK
  6. ASPIRIN [Concomitant]
     Dosage: 325 MG, DAILY (1/D)
  7. ATENOLOL [Concomitant]
     Dosage: 50 MG, UNK
  8. BACLOFEN [Concomitant]
  9. SYNTHROID [Concomitant]
     Dosage: 0.112 MG, UNK
  10. FORTEO [Suspect]
     Indication: OSTEOPOROSIS
     Dosage: 20 UG, DAILY (1/D)
     Route: 058
     Dates: start: 20100308
  11. FORTEO [Suspect]
     Dosage: 20 UG, DAILY (1/D)
     Route: 058
     Dates: end: 20111101
  12. LIPITOR [Concomitant]
     Dosage: 10 MG, DAILY (1/D)
  13. PREMPRO [Concomitant]
  14. PROTONIX [Concomitant]
     Dosage: 40 MG, UNK
  15. ELAVIL [Concomitant]

REACTIONS (10)
  - CATHETERISATION CARDIAC [None]
  - DRUG DOSE OMISSION [None]
  - MALAISE [None]
  - LOSS OF CONSCIOUSNESS [None]
  - MOVEMENT DISORDER [None]
  - MYOCARDIAL INFARCTION [None]
  - CARDIAC ENZYMES INCREASED [None]
  - MUSCULAR WEAKNESS [None]
  - HOSPITALISATION [None]
  - MUSCLE SPASMS [None]
